FAERS Safety Report 24561498 (Version 1)
Quarter: 2024Q4

REPORT INFORMATION
  Report Type: Report from Study
  Country: CA (occurrence: CA)
  Receive Date: 20241029
  Receipt Date: 20241029
  Transmission Date: 20250114
  Serious: No
  Sender: ROCHE
  Company Number: CA-ROCHE-10000118688

PATIENT
  Sex: Female

DRUGS (1)
  1. ENSPRYNG [Suspect]
     Active Substance: SATRALIZUMAB-MWGE
     Indication: Neuromyelitis optica spectrum disorder
     Dosage: MORE DOSAGE INFORMATION IS 120 MG AT WEEKS 0, 2, AND 4 THEN EVERY 4 WEEKS
     Route: 058
     Dates: start: 20240710

REACTIONS (1)
  - Hepatic steatosis [Not Recovered/Not Resolved]
